FAERS Safety Report 5397481-6 (Version None)
Quarter: 2007Q3

REPORT INFORMATION
  Report Type: 
  Country: None (occurrence: None)
  Receive Date: 20070723
  Receipt Date: 20070723
  Transmission Date: 20080115
  Serious: Yes (Hospitalization, Other)
  Sender: FDA-Public Use
  Company Number: None

PATIENT
  Sex: Female
  Weight: 58.0604 kg

DRUGS (4)
  1. ORTHO EVRA [Suspect]
     Indication: CONTRACEPTION
     Dosage: 1 PATCH 1 WEEKLY PATCH EXTERNAL ON SKIN
     Route: 062
     Dates: start: 20010101, end: 20060601
  2. ALBUTEROL [Concomitant]
  3. SINGULAIR [Concomitant]
  4. PAIN MEDS(NOT SPECIFIED) [Concomitant]

REACTIONS (4)
  - ASTHMA [None]
  - HAEMATOCRIT DECREASED [None]
  - HEPATIC NEOPLASM [None]
  - PULMONARY EMBOLISM [None]
